FAERS Safety Report 17041893 (Version 2)
Quarter: 2019Q4

REPORT INFORMATION
  Report Type: Report from Study
  Country: BR (occurrence: BR)
  Receive Date: 20191118
  Receipt Date: 20191231
  Transmission Date: 20200122
  Serious: Yes (Hospitalization, Other)
  Sender: FDA-Public Use
  Company Number: NVSC2019BR037356

PATIENT
  Age: 69 Year
  Sex: Male
  Weight: 47 kg

DRUGS (3)
  1. ULTIBRO BREEZHALER [Suspect]
     Active Substance: GLYCOPYRRONIUM\INDACATEROL
     Indication: CHRONIC OBSTRUCTIVE PULMONARY DISEASE
     Dosage: 1 DF
     Route: 055
  2. ENTRESTO [Suspect]
     Active Substance: SACUBITRIL\VALSARTAN
     Indication: CARDIAC DISORDER
     Dosage: 2 DF  (24/26 MG), QD
     Route: 048
     Dates: start: 20191023, end: 20191225
  3. LIPITOR [Concomitant]
     Active Substance: ATORVASTATIN CALCIUM
     Indication: BLOOD CHOLESTEROL ABNORMAL
     Dosage: 1 DF, QD (STARTED 7 YEARS AGO)
     Route: 048

REACTIONS (5)
  - Cardiac failure [Unknown]
  - Blood creatine phosphokinase increased [Unknown]
  - Inappropriate schedule of product administration [Recovered/Resolved]
  - Chronic obstructive pulmonary disease [Unknown]
  - Product use in unapproved indication [Unknown]

NARRATIVE: CASE EVENT DATE: 201910
